FAERS Safety Report 4836751-4 (Version None)
Quarter: 2005Q4

REPORT INFORMATION
  Report Type: 
  Country: None (occurrence: None)
  Receive Date: 20051121
  Receipt Date: 20051110
  Transmission Date: 20060501
  Serious: Yes (Disabling)
  Sender: FDA-Public Use
  Company Number: 2005AP000935

PATIENT
  Age: 56 Year
  Sex: Female
  Weight: 50.8029 kg

DRUGS (6)
  1. APO-LEVOCARB CR (LEVODOPA/CARBIDOPA) [Suspect]
     Indication: PARKINSON'S DISEASE
     Dosage: 1 TAB; 5XD; PO
     Route: 048
     Dates: start: 20030319, end: 20040601
  2. DOMPERIDONE [Concomitant]
  3. PERMAX [Concomitant]
  4. ELTROXIN ^GLAXO^ [Concomitant]
  5. PREVACID [Concomitant]
  6. CORGARD [Concomitant]

REACTIONS (4)
  - DRUG INEFFECTIVE [None]
  - DYSKINESIA [None]
  - DYSPNOEA [None]
  - HYPERVENTILATION [None]
